FAERS Safety Report 7153421-0 (Version None)
Quarter: 2010Q4

REPORT INFORMATION
  Report Type: 
  Country: None (occurrence: None)
  Receive Date: 20101213
  Receipt Date: 20101207
  Transmission Date: 20110411
  Serious: Yes (Disabling)
  Sender: FDA-Public Use
  Company Number: A0898379A

PATIENT
  Age: 58 Year
  Sex: Female

DRUGS (16)
  1. AVANDIA [Suspect]
     Dosage: 4MG PER DAY
     Route: 048
     Dates: start: 20000101, end: 20081201
  2. PRILOSEC [Concomitant]
     Dosage: 40MG TWICE PER DAY
  3. SYNTHROID [Concomitant]
  4. UNSPECIFIED MEDICATION [Concomitant]
  5. LASIX [Concomitant]
     Dosage: 20MG AS REQUIRED
  6. ATACAND [Concomitant]
  7. ATENOLOL [Concomitant]
  8. ZOCOR [Concomitant]
  9. LOPID [Concomitant]
  10. XANAX [Concomitant]
  11. FLEXERIL [Concomitant]
  12. PEPCID [Concomitant]
     Dosage: 20MG TWICE PER DAY
  13. ALLOPURINOL [Concomitant]
  14. CENTRUM SILVER [Concomitant]
  15. ASPIRIN [Concomitant]
  16. VITAMINS [Concomitant]

REACTIONS (6)
  - ANAEMIA [None]
  - DIABETES MELLITUS [None]
  - DYSPNOEA [None]
  - FATIGUE [None]
  - WEIGHT DECREASED [None]
  - WEIGHT INCREASED [None]
